FAERS Safety Report 10062615 (Version 1)
Quarter: 2014Q1

REPORT INFORMATION
  Report Type: Spontaneous
  Country: US (occurrence: None)
  Receive Date: 20140313
  Receipt Date: 20140313
  Transmission Date: 20141002
  Serious: No
  Sender: FDA-Public Use
  Company Number: 1000049797

PATIENT
  Age: 65 Year
  Sex: Female

DRUGS (3)
  1. DALIRESP (ROFLUMILAST) (TABLETS) [Suspect]
     Indication: BRONCHITIS
     Dosage: 500 MCG (500 MCG, 1 IN 1
     Dates: start: 20130930
  2. ZITHROMAX Z PACK (AZITHROMYCIN) (AZITHROMYCIN) [Concomitant]
  3. PREDNISONE (PREDNISONE) (PREDNISONE) [Concomitant]

REACTIONS (4)
  - Local swelling [None]
  - Diarrhoea [None]
  - Weight decreased [None]
  - Off label use [None]
